FAERS Safety Report 9672465 (Version 1)
Quarter: 2013Q4

REPORT INFORMATION
  Report Type: Spontaneous
  Country: US (occurrence: US)
  Receive Date: 20131106
  Receipt Date: 20131106
  Transmission Date: 20140711
  Serious: No
  Sender: FDA-Public Use
  Company Number: US-TEVA-443076USA

PATIENT
  Sex: Male

DRUGS (3)
  1. FENTORA [Suspect]
     Indication: BREAKTHROUGH PAIN
  2. DURAGESIC [Concomitant]
     Dosage: 2-3 PATCHES EVERY 48 HOURS
     Dates: start: 1996
  3. OXYCODONE [Concomitant]
     Indication: BREAKTHROUGH PAIN

REACTIONS (4)
  - Visual acuity reduced [Not Recovered/Not Resolved]
  - Dental caries [Unknown]
  - Tooth disorder [Unknown]
  - Off label use [Unknown]
